FAERS Safety Report 20419834 (Version 1)
Quarter: 2022Q1

REPORT INFORMATION
  Report Type: Spontaneous
  Country: US (occurrence: US)
  Receive Date: 20220203
  Receipt Date: 20220203
  Transmission Date: 20220423
  Serious: Yes (Hospitalization, Other)
  Sender: FDA-Public Use
  Company Number: US-QUAGEN-2022QUALIT00008

PATIENT
  Age: 29 Year
  Sex: Female

DRUGS (6)
  1. LIDOCAINE [Suspect]
     Active Substance: LIDOCAINE
     Indication: Radicular pain
     Dosage: TO A MAXIMUM OF 1.6 MG/KG/H
     Route: 042
  2. LIDOCAINE [Suspect]
     Active Substance: LIDOCAINE
     Route: 042
  3. LIDOCAINE [Suspect]
     Active Substance: LIDOCAINE
     Route: 042
  4. DEXAMETHASONE [Concomitant]
     Active Substance: DEXAMETHASONE
     Indication: Spinal cord compression
     Route: 042
  5. DEXAMETHASONE [Concomitant]
     Active Substance: DEXAMETHASONE
     Route: 042
  6. DEXAMETHASONE [Concomitant]
     Active Substance: DEXAMETHASONE
     Route: 042

REACTIONS (1)
  - Hoigne^s syndrome [Recovered/Resolved]
